FAERS Safety Report 13244681 (Version 1)
Quarter: 2017Q1

REPORT INFORMATION
  Report Type: Spontaneous
  Country: US (occurrence: US)
  Receive Date: 20170216
  Receipt Date: 20170216
  Transmission Date: 20170428
  Serious: No
  Sender: FDA-Public Use
  Company Number: US-JAZZ-2017-US-001134

PATIENT
  Sex: Female

DRUGS (21)
  1. XYREM [Suspect]
     Active Substance: SODIUM OXYBATE
     Indication: APNOEA
     Dosage: 2.25G, BID
     Route: 048
     Dates: start: 200911, end: 2009
  2. XYREM [Suspect]
     Active Substance: SODIUM OXYBATE
     Dosage: 5G, BID
     Route: 048
     Dates: start: 201611
  3. BONIVA [Concomitant]
     Active Substance: IBANDRONATE SODIUM
  4. FLECTOR                            /00372302/ [Concomitant]
     Active Substance: DICLOFENAC SODIUM
  5. IBUPROFEN. [Concomitant]
     Active Substance: IBUPROFEN
  6. MAXALT [Concomitant]
     Active Substance: RIZATRIPTAN BENZOATE
  7. ESTROGENS [Concomitant]
     Active Substance: ESTROGENS
  8. PREDNISONE. [Concomitant]
     Active Substance: PREDNISONE
  9. SIMVASTATIN. [Concomitant]
     Active Substance: SIMVASTATIN
  10. EFFEXOR [Concomitant]
     Active Substance: VENLAFAXINE HYDROCHLORIDE
  11. LORAZEPAM. [Concomitant]
     Active Substance: LORAZEPAM
  12. POTASSIUM CL [Concomitant]
     Active Substance: POTASSIUM CHLORIDE
  13. TRAVATAN [Concomitant]
     Active Substance: TRAVOPROST
  14. XYREM [Suspect]
     Active Substance: SODIUM OXYBATE
     Dosage: DOSE ADJUSTMENT
     Route: 048
     Dates: start: 2009, end: 2016
  15. CELEBREX [Concomitant]
     Active Substance: CELECOXIB
  16. SULFASALAZINE. [Concomitant]
     Active Substance: SULFASALAZINE
  17. AMOXICILLIN. [Concomitant]
     Active Substance: AMOXICILLIN
  18. BUSPAR [Concomitant]
     Active Substance: BUSPIRONE HYDROCHLORIDE
  19. FLUTICASONE. [Concomitant]
     Active Substance: FLUTICASONE
  20. CLONAZEPAM. [Concomitant]
     Active Substance: CLONAZEPAM
  21. HYDROCODONE [Concomitant]
     Active Substance: HYDROCODONE

REACTIONS (1)
  - Somnambulism [Unknown]
